FAERS Safety Report 6054758-9 (Version None)
Quarter: 2009Q1

REPORT INFORMATION
  Report Type: 
  Country: None (occurrence: None)
  Receive Date: 20090128
  Receipt Date: 20090121
  Transmission Date: 20090719
  Serious: Yes (Hospitalization)
  Sender: FDA-Public Use
  Company Number: ES-AMGEN-UK310464

PATIENT
  Age: 81 Year
  Sex: Female

DRUGS (21)
  1. ARANESP [Suspect]
     Indication: ANAEMIA
     Route: 058
     Dates: start: 20061129
  2. ARANESP [Suspect]
     Route: 065
     Dates: start: 20070207, end: 20080130
  3. ARANESP [Suspect]
     Route: 065
     Dates: start: 20080130, end: 20080423
  4. ARANESP [Suspect]
     Route: 065
     Dates: start: 20080423, end: 20080726
  5. ARANESP [Suspect]
     Route: 065
     Dates: start: 20081001
  6. DIGOXIN [Concomitant]
  7. DILTIAZEM [Concomitant]
  8. OMEPRAZOLE [Concomitant]
  9. FOLIC ACID [Concomitant]
  10. VITAMIN B-12 [Concomitant]
  11. ISOSORBIDE MONONITRATE [Concomitant]
     Route: 065
  12. ACETAMINOPHEN [Concomitant]
  13. DIPYRONE TAB [Concomitant]
  14. ACFOL [Concomitant]
  15. ZOPICLONE [Concomitant]
  16. PAROXETINE HCL [Concomitant]
  17. ACETYLSALICYLIC ACID [Concomitant]
  18. ACENOCOUMAROL [Concomitant]
  19. HEPTAMINOL HYDROCHLORIDE [Concomitant]
  20. TRIMETAZIDINE [Concomitant]
  21. TORSEMIDE [Concomitant]

REACTIONS (8)
  - ARRHYTHMIA [None]
  - BLOOD PRESSURE INCREASED [None]
  - DIZZINESS [None]
  - HYPERHIDROSIS [None]
  - ISCHAEMIC STROKE [None]
  - LOSS OF CONSCIOUSNESS [None]
  - TACHYCARDIA [None]
  - VOMITING [None]
